FAERS Safety Report 5939538-4 (Version None)
Quarter: 2008Q4

REPORT INFORMATION
  Report Type: 
  Country: None (occurrence: None)
  Receive Date: 20081029
  Receipt Date: 20081023
  Transmission Date: 20090506
  Serious: Yes (Death)
  Sender: FDA-Public Use
  Company Number: 2008JP005069

PATIENT
  Age: 33 Year
  Sex: Female

DRUGS (2)
  1. PROGRAF [Suspect]
     Indication: RENAL TRANSPLANT
  2. METHYLPREDNISOLONE [Concomitant]

REACTIONS (1)
  - NEOPLASM MALIGNANT [None]
